FAERS Safety Report 8821784 (Version 1)
Quarter: 2012Q4

REPORT INFORMATION
  Report Type: Report from Study
  Country: ES (occurrence: ES)
  Receive Date: 20121002
  Receipt Date: 20121002
  Transmission Date: 20130627
  Serious: Yes (Other)
  Sender: FDA-Public Use
  Company Number: ES-ASTELLAS-2012US009768

PATIENT
  Age: 83 Year
  Sex: Male

DRUGS (1)
  1. ERLOTINIB TABLET [Suspect]
     Indication: LUNG SQUAMOUS CELL CARCINOMA STAGE IV
     Dosage: 150 mg, UID/QD
     Route: 048

REACTIONS (4)
  - Blindness [None]
  - Iris incarceration [Unknown]
  - Ulcerative keratitis [Unknown]
  - Ulcerative keratitis [Unknown]
